FAERS Safety Report 20870016 (Version 6)
Quarter: 2023Q2

REPORT INFORMATION
  Report Type: Other
  Country: DE (occurrence: None)
  Receive Date: 20220525
  Receipt Date: 20230630
  Transmission Date: 20230721
  Serious: No
  Sender: FDA-Public Use
  Company Number: DE-ROCHE-2887751

PATIENT
  Age: 54 Year
  Sex: Female

DRUGS (10)
  1. OCREVUS [Suspect]
     Active Substance: OCRELIZUMAB
     Indication: Primary progressive multiple sclerosis
     Route: 042
     Dates: start: 20210609
  2. OCREVUS [Suspect]
     Active Substance: OCRELIZUMAB
     Indication: Relapsing-remitting multiple sclerosis
     Dosage: ONCE IN 180 DAYS., SECOND INITIAL DOSE
     Route: 042
     Dates: start: 20210623
  3. EVUSHELD [Suspect]
     Active Substance: CILGAVIMAB\TIXAGEVIMAB
     Indication: Product used for unknown indication
     Route: 065
  4. CORTISONE [Concomitant]
     Active Substance: CORTISONE
     Route: 037
  5. DALFAMPRIDINE [Concomitant]
     Active Substance: DALFAMPRIDINE
  6. LEVOTHYROXINE [Concomitant]
     Active Substance: LEVOTHYROXINE
  7. PANTOPRAZOLE [Concomitant]
     Active Substance: PANTOPRAZOLE
  8. NEBIVOLOL [Concomitant]
     Active Substance: NEBIVOLOL
  9. ATORVASTATIN [Concomitant]
     Active Substance: ATORVASTATIN
  10. ASPIRIN [Concomitant]
     Active Substance: ASPIRIN

REACTIONS (10)
  - Lichen planus [Recovered/Resolved]
  - Respiratory tract infection [Recovered/Resolved]
  - Haematocrit increased [Recovered/Resolved]
  - COVID-19 [Recovered/Resolved]
  - SARS-CoV-2 antibody test negative [Not Recovered/Not Resolved]
  - Fall [Unknown]
  - Ligament rupture [Recovered/Resolved]
  - Lichen sclerosus [Recovered/Resolved]
  - B-lymphocyte count decreased [Not Recovered/Not Resolved]
  - Lymphocyte count decreased [Not Recovered/Not Resolved]

NARRATIVE: CASE EVENT DATE: 20210623
